FAERS Safety Report 17150011 (Version 3)
Quarter: 2020Q1

REPORT INFORMATION
  Report Type: Report from Study
  Country: US (occurrence: US)
  Receive Date: 20191213
  Receipt Date: 20200122
  Transmission Date: 20200409
  Serious: Yes (Hospitalization, Other)
  Sender: FDA-Public Use
  Company Number: US-ROCHE-2152578

PATIENT
  Age: 47 Year
  Sex: Female
  Weight: 75.8 kg

DRUGS (57)
  1. ATEZOLIZUMAB. [Suspect]
     Active Substance: ATEZOLIZUMAB
     Route: 042
     Dates: start: 20180209
  2. ATEZOLIZUMAB. [Suspect]
     Active Substance: ATEZOLIZUMAB
     Route: 042
     Dates: start: 20180305
  3. ATEZOLIZUMAB. [Suspect]
     Active Substance: ATEZOLIZUMAB
     Route: 042
     Dates: start: 20171211
  4. OXYCODONE [Concomitant]
     Active Substance: OXYCODONE
  5. SUNITINIB [Concomitant]
     Active Substance: SUNITINIB
  6. FEXOFENADINE [Concomitant]
     Active Substance: FEXOFENADINE HYDROCHLORIDE
  7. DULOXETINE. [Concomitant]
     Active Substance: DULOXETINE
  8. IPRATROPIUM [Concomitant]
     Active Substance: IPRATROPIUM
  9. LORAZEPAM. [Concomitant]
     Active Substance: LORAZEPAM
  10. LIDOCAINE. [Concomitant]
     Active Substance: LIDOCAINE
  11. TORSEMIDE. [Concomitant]
     Active Substance: TORSEMIDE
  12. ATEZOLIZUMAB. [Suspect]
     Active Substance: ATEZOLIZUMAB
     Indication: ALVEOLAR SOFT PART SARCOMA
     Dosage: PATIENTS RECEIVE ATEZOLIZUMAB IV OVER 60 MINUTES ON DAY 1. COURSES REPEAT EVERY 21 DAYS IN THE ABSEN
     Route: 042
     Dates: start: 20171211
  13. ATEZOLIZUMAB. [Suspect]
     Active Substance: ATEZOLIZUMAB
     Route: 042
     Dates: start: 20171211
  14. BETAMETHASONE. [Concomitant]
     Active Substance: BETAMETHASONE
  15. GEMFIBROZIL. [Concomitant]
     Active Substance: GEMFIBROZIL
  16. METOPROLOL. [Concomitant]
     Active Substance: METOPROLOL
  17. PREGABALIN. [Concomitant]
     Active Substance: PREGABALIN
  18. PILOCARPINE. [Concomitant]
     Active Substance: PILOCARPINE
  19. AMITIZA [Concomitant]
     Active Substance: LUBIPROSTONE
  20. GLUCOSAMINE [Concomitant]
     Active Substance: GLUCOSAMINE
  21. LUBIPROSTONE [Concomitant]
     Active Substance: LUBIPROSTONE
  22. SENNOSIDE [SENNOSIDE A+B] [Concomitant]
     Active Substance: SENNOSIDES A AND B
  23. ATEZOLIZUMAB. [Suspect]
     Active Substance: ATEZOLIZUMAB
     Route: 042
     Dates: start: 20171211
  24. ATEZOLIZUMAB. [Suspect]
     Active Substance: ATEZOLIZUMAB
     Route: 042
     Dates: start: 20171211
  25. ADVIL [IBUPROFEN] [Concomitant]
     Active Substance: IBUPROFEN
  26. ATENOLOL. [Concomitant]
     Active Substance: ATENOLOL
  27. LYRICA [Concomitant]
     Active Substance: PREGABALIN
  28. OXYGEN. [Concomitant]
     Active Substance: OXYGEN
  29. CYCLOBENZAPRINE. [Concomitant]
     Active Substance: CYCLOBENZAPRINE
  30. FLUTICASONE. [Concomitant]
     Active Substance: FLUTICASONE
  31. ATEZOLIZUMAB. [Suspect]
     Active Substance: ATEZOLIZUMAB
     Route: 042
     Dates: start: 20171211
  32. ATEZOLIZUMAB. [Suspect]
     Active Substance: ATEZOLIZUMAB
     Route: 042
     Dates: start: 20171211
  33. AMBIEN [Concomitant]
     Active Substance: ZOLPIDEM TARTRATE
  34. OXYBUTYNIN. [Concomitant]
     Active Substance: OXYBUTYNIN CHLORIDE
  35. ACETAMINOPHEN. [Concomitant]
     Active Substance: ACETAMINOPHEN
  36. AZELASTINE. [Concomitant]
     Active Substance: AZELASTINE HYDROCHLORIDE
  37. MOMETASONE [Concomitant]
     Active Substance: MOMETASONE
  38. ATEZOLIZUMAB. [Suspect]
     Active Substance: ATEZOLIZUMAB
     Route: 042
     Dates: start: 20180103
  39. ATEZOLIZUMAB. [Suspect]
     Active Substance: ATEZOLIZUMAB
     Route: 042
     Dates: start: 20180124
  40. ALBUTEROL [SALBUTAMOL] [Concomitant]
     Active Substance: ALBUTEROL
  41. ALPRAZOLAM. [Concomitant]
     Active Substance: ALPRAZOLAM
  42. BUDESONIDE;FORMOTEROL [Concomitant]
     Active Substance: BUDESONIDE\FORMOTEROL
  43. CHOLECALCIFEROL [Concomitant]
     Active Substance: CHOLECALCIFEROL
  44. DOXEPIN [Concomitant]
     Active Substance: DOXEPIN
  45. HEPARIN [Concomitant]
     Active Substance: HEPARIN SODIUM
  46. MONTELUKAST [Concomitant]
     Active Substance: MONTELUKAST SODIUM
  47. RANITIDINE. [Concomitant]
     Active Substance: RANITIDINE
  48. ATEZOLIZUMAB. [Suspect]
     Active Substance: ATEZOLIZUMAB
     Route: 042
     Dates: start: 20171211
  49. ATEZOLIZUMAB. [Suspect]
     Active Substance: ATEZOLIZUMAB
     Route: 042
     Dates: start: 20171211
  50. ATEZOLIZUMAB. [Suspect]
     Active Substance: ATEZOLIZUMAB
     Route: 042
     Dates: start: 20180103
  51. CYMBALTA [Concomitant]
     Active Substance: DULOXETINE HYDROCHLORIDE
  52. PROAIR HFA [Concomitant]
     Active Substance: ALBUTEROL SULFATE
  53. ESZOPICLONE. [Concomitant]
     Active Substance: ESZOPICLONE
  54. FORMOTEROL [Concomitant]
     Active Substance: FORMOTEROL
  55. HYDROCORTISONE. [Concomitant]
     Active Substance: HYDROCORTISONE
  56. OLOPATADINE. [Concomitant]
     Active Substance: OLOPATADINE
  57. TRAZODONE [Concomitant]
     Active Substance: TRAZODONE HYDROCHLORIDE

REACTIONS (9)
  - Anaemia [Unknown]
  - Anxiety [Unknown]
  - Activated partial thromboplastin time prolonged [Unknown]
  - Urinary tract infection [Unknown]
  - Hypertension [Unknown]
  - Cerebrovascular accident [Recovered/Resolved]
  - Pneumonitis [Unknown]
  - Hypoxia [Unknown]
  - Pneumonia [Unknown]

NARRATIVE: CASE EVENT DATE: 20190215
